FAERS Safety Report 18143214 (Version 5)
Quarter: 2021Q1

REPORT INFORMATION
  Report Type: Report from Study
  Country: US (occurrence: US)
  Receive Date: 20200812
  Receipt Date: 20210221
  Transmission Date: 20210419
  Serious: Yes (Hospitalization, Other)
  Sender: FDA-Public Use
  Company Number: NVSC2020US216966

PATIENT
  Age: 51 Year
  Sex: Female

DRUGS (2)
  1. ENTRESTO [Suspect]
     Active Substance: SACUBITRIL\VALSARTAN
     Indication: CARDIAC FAILURE
     Dosage: 50 MG, BID (24/26MG)
     Route: 048
     Dates: start: 201910, end: 202003
  2. ENTRESTO [Suspect]
     Active Substance: SACUBITRIL\VALSARTAN
     Dosage: UNK
     Route: 065
     Dates: start: 202007

REACTIONS (11)
  - Fatigue [Recovering/Resolving]
  - Ejection fraction abnormal [Unknown]
  - Cough [Recovering/Resolving]
  - Product dose omission issue [Unknown]
  - Weight increased [Recovering/Resolving]
  - COVID-19 [Unknown]
  - Angina pectoris [Recovered/Resolved]
  - Swelling [Recovering/Resolving]
  - Illness [Unknown]
  - Dyspnoea [Recovering/Resolving]
  - Weight decreased [Unknown]

NARRATIVE: CASE EVENT DATE: 201910
